FAERS Safety Report 9746375 (Version 2)
Quarter: 2014Q1

REPORT INFORMATION
  Report Type: Spontaneous
  Country: US (occurrence: US)
  Receive Date: 20131211
  Receipt Date: 20140116
  Transmission Date: 20141002
  Serious: Yes (Disabling)
  Sender: FDA-Public Use
  Company Number: US-GLAXOSMITHKLINE-A1051864A

PATIENT
  Age: 29 Year
  Sex: Female
  Weight: 75 kg

DRUGS (1)
  1. ZOFRAN [Suspect]
     Indication: VOMITING
     Route: 048

REACTIONS (2)
  - Vomiting [Unknown]
  - Exposure during pregnancy [Unknown]
